FAERS Safety Report 25771442 (Version 1)
Quarter: 2025Q3

REPORT INFORMATION
  Report Type: Spontaneous
  Country: US (occurrence: US)
  Receive Date: 20250908
  Receipt Date: 20250908
  Transmission Date: 20251021
  Serious: No
  Sender: DOMPE FARMACEUTICI
  Company Number: US-FARMAPROD-202504-1278

PATIENT
  Sex: Male

DRUGS (4)
  1. OXERVATE [Suspect]
     Active Substance: CENEGERMIN-BKBJ
     Indication: Neurotrophic keratopathy
     Route: 047
     Dates: start: 20250326, end: 20250521
  2. OXERVATE [Suspect]
     Active Substance: CENEGERMIN-BKBJ
  3. TIMOLOL-BRIMONIDIN-DORZOLAMIDE [Concomitant]
  4. ROCKLATAN [Concomitant]
     Active Substance: LATANOPROST\NETARSUDIL MESYLATE

REACTIONS (4)
  - Vision blurred [Unknown]
  - Scab [Unknown]
  - Dry eye [Unknown]
  - Drug ineffective [Unknown]
